FAERS Safety Report 6256960-X (Version None)
Quarter: 2009Q2

REPORT INFORMATION
  Report Type: 
  Country: None (occurrence: None)
  Receive Date: 20090630
  Receipt Date: 20090630
  Transmission Date: 20091009
  Serious: Yes (Other)
  Sender: FDA-Public Use
  Company Number: None

PATIENT
  Age: 60 Year
  Sex: Male
  Weight: 102.0593 kg

DRUGS (1)
  1. PROPOFOL [Suspect]
     Indication: SEDATIVE THERAPY
     Dosage: 500 MG TOTAL FOR CASE IV 943AM TO 1015AM
     Route: 042

REACTIONS (2)
  - BODY TEMPERATURE INCREASED [None]
  - CHILLS [None]
